FAERS Safety Report 17933544 (Version 1)
Quarter: 2020Q2

REPORT INFORMATION
  Report Type: Spontaneous
  Country: US (occurrence: US)
  Receive Date: 20200624
  Receipt Date: 20200624
  Transmission Date: 20200714
  Serious: No
  Sender: FDA-Public Use
  Company Number: US-009507513-2006USA007196

PATIENT
  Age: 15 Year
  Sex: Female
  Weight: 64.86 kg

DRUGS (1)
  1. NEXPLANON [Suspect]
     Active Substance: ETONOGESTREL
     Dosage: 68 MG, ONE IMPLANT 3 YEARS
     Route: 059
     Dates: start: 20200610, end: 20200611

REACTIONS (3)
  - Device kink [Recovered/Resolved]
  - No adverse event [Unknown]
  - Device expulsion [Recovered/Resolved]

NARRATIVE: CASE EVENT DATE: 20200611
